FAERS Safety Report 4747892-4 (Version None)
Quarter: 2005Q3

REPORT INFORMATION
  Report Type: 
  Country: None (occurrence: None)
  Receive Date: 20050816
  Receipt Date: 20050804
  Transmission Date: 20060218
  Serious: Yes (Hospitalization)
  Sender: FDA-Public Use
  Company Number: 2005-0008567

PATIENT
  Age: 72 Year
  Sex: Male

DRUGS (15)
  1. VIREAD [Suspect]
     Indication: HIV INFECTION
     Dosage: 300 MG, 1 IN 1 D, ORAL; 300 MG, 1 IN 1 D, ORAL
     Route: 048
     Dates: start: 20040708, end: 20040812
  2. VIREAD [Suspect]
     Indication: HIV INFECTION
     Dosage: 300 MG, 1 IN 1 D, ORAL; 300 MG, 1 IN 1 D, ORAL
     Route: 048
     Dates: start: 20041206
  3. EFAVIRENZ [Suspect]
     Indication: HIV INFECTION
     Dosage: 600 MG, 1 IN 1 D, ORAL; 600 MG, 1 IN 1 D, ORAL
     Route: 048
     Dates: start: 20040708, end: 20040812
  4. EPIVIR [Suspect]
     Indication: HIV INFECTION
     Dosage: 300 MG, 1 IN 1 D, ORAL; 300 MG, 1 IN 1 D, ORAL
     Route: 048
     Dates: start: 20040417, end: 20040614
  5. EPIVIR [Suspect]
     Indication: HIV INFECTION
     Dosage: 300 MG, 1 IN 1 D, ORAL; 300 MG, 1 IN 1 D, ORAL
     Route: 048
     Dates: start: 20040708, end: 20040812
  6. COMBIVIR [Suspect]
     Indication: HIV INFECTION
     Dosage: 2 DOSAGE FORMS, 1 IN 1 D, ORAL
     Route: 048
     Dates: start: 20040401, end: 20040416
  7. ZERIT [Suspect]
     Indication: HIV INFECTION
     Dosage: 60 MG, 1 IN 1 D, ORAL
     Route: 048
     Dates: start: 20040417, end: 20040420
  8. ZIAGEN [Suspect]
     Indication: HIV INFECTION
     Dosage: 600MG, 1 IN 1 D, ORAL
     Route: 048
     Dates: start: 20040421, end: 20040614
  9. VIDEX [Suspect]
     Indication: HIV INFECTION
     Dosage: 400 MG, 1 IN 1 D, ORAL
     Route: 048
     Dates: start: 20041206
  10. REYATAZ [Suspect]
     Indication: HIV INFECTION
     Dosage: 400 MG, 1 IN 1 D, ORAL
     Route: 048
     Dates: start: 20041206
  11. NORVIR [Suspect]
     Indication: HIV INFECTION
     Dosage: 100 MG, 1 IN 1 D, ORAL
     Route: 048
     Dates: start: 20041224
  12. LOXONIN (LOXOPROFEN SODIUM) [Concomitant]
  13. LENDORM [Concomitant]
  14. AMOBAN (ZOPICLONE) [Concomitant]
  15. URSODIOL [Concomitant]

REACTIONS (8)
  - ALANINE AMINOTRANSFERASE INCREASED [None]
  - ASPARTATE AMINOTRANSFERASE INCREASED [None]
  - BLOOD ALKALINE PHOSPHATASE INCREASED [None]
  - BLOOD BILIRUBIN INCREASED [None]
  - BLOOD LACTATE DEHYDROGENASE INCREASED [None]
  - GAMMA-GLUTAMYLTRANSFERASE INCREASED [None]
  - HYPOAESTHESIA [None]
  - LIVER DISORDER [None]
